FAERS Safety Report 5491508-9 (Version None)
Quarter: 2007Q4

REPORT INFORMATION
  Report Type: 
  Country: None (occurrence: None)
  Receive Date: 20071022
  Receipt Date: 20071010
  Transmission Date: 20080405
  Serious: Yes (Other)
  Sender: FDA-Public Use
  Company Number: PHEH2007US13540

PATIENT
  Age: 53 Year
  Sex: Female

DRUGS (1)
  1. FEMARA [Suspect]
     Route: 065

REACTIONS (6)
  - BONE PAIN [None]
  - CARDIOMYOPATHY [None]
  - HYSTERECTOMY [None]
  - MYALGIA [None]
  - OOPHORECTOMY [None]
  - UTERINE PROLAPSE [None]
